FAERS Safety Report 7230431-6 (Version None)
Quarter: 2011Q1

REPORT INFORMATION
  Report Type: 
  Country: None (occurrence: None)
  Receive Date: 20110118
  Receipt Date: 20110110
  Transmission Date: 20110831
  Serious: Yes (Hospitalization, Other)
  Sender: FDA-Public Use
  Company Number: ES-ELI_LILLY_AND_COMPANY-ES201101002279

PATIENT
  Sex: Female
  Weight: 55 kg

DRUGS (2)
  1. SINTROM [Concomitant]
     Indication: ARRHYTHMIA
     Dosage: 4 MG, UNK
     Route: 048
     Dates: start: 20030101
  2. FORTEO [Suspect]
     Indication: OSTEOPOROSIS
     Dosage: 20 UG, DAILY (1/D)
     Route: 058
     Dates: start: 20100902, end: 20101222

REACTIONS (2)
  - ARRHYTHMIA [None]
  - PLEURAL EFFUSION [None]
